FAERS Safety Report 9894092 (Version 1)
Quarter: 2014Q1

REPORT INFORMATION
  Report Type: Spontaneous
  Country: NO (occurrence: NO)
  Receive Date: 20140213
  Receipt Date: 20140213
  Transmission Date: 20141002
  Serious: Yes (Other)
  Sender: FDA-Public Use
  Company Number: NO-ELI_LILLY_AND_COMPANY-NO201402001540

PATIENT
  Age: 66 Year
  Sex: Female

DRUGS (1)
  1. ZYPADHERA [Suspect]
     Indication: SCHIZOPHRENIA, PARANOID TYPE
     Dosage: 405 MG, EVERY 4 WEEKS
     Route: 042

REACTIONS (11)
  - Syncope [Unknown]
  - Hypotension [Recovered/Resolved]
  - Sedation [Unknown]
  - Somnolence [Recovered/Resolved]
  - Hypotension [Recovered/Resolved]
  - Paraesthesia [Recovered/Resolved]
  - Fatigue [Recovered/Resolved]
  - Dizziness [Unknown]
  - Asthenia [Unknown]
  - Incorrect route of drug administration [Unknown]
  - Lymphocyte count decreased [Unknown]
